FAERS Safety Report 17583558 (Version 1)
Quarter: 2020Q1

REPORT INFORMATION
  Report Type: Report from Study
  Country: None (occurrence: US)
  Receive Date: 20200326
  Receipt Date: 20200326
  Transmission Date: 20200409
  Serious: Yes (Other)
  Sender: FDA-Public Use
  Company Number: US-ABBVIE-20K-163-3336650-00

PATIENT
  Age: 55 Year
  Sex: Male

DRUGS (1)
  1. HUMIRA [Suspect]
     Active Substance: ADALIMUMAB
     Indication: RHEUMATOID ARTHRITIS
     Dosage: CITRATE FREE
     Route: 058

REACTIONS (7)
  - Muscular weakness [Unknown]
  - Peripheral swelling [Unknown]
  - Prostatic operation [Unknown]
  - Asthenia [Unknown]
  - Joint range of motion decreased [Unknown]
  - Bladder operation [Unknown]
  - Joint swelling [Unknown]

NARRATIVE: CASE EVENT DATE: 201912
